FAERS Safety Report 7509973-1 (Version None)
Quarter: 2011Q2

REPORT INFORMATION
  Report Type: 
  Country: None (occurrence: None)
  Receive Date: 20110527
  Receipt Date: 20110523
  Transmission Date: 20111010
  Serious: Yes (Hospitalization, Other)
  Sender: FDA-Public Use
  Company Number: US-GENZYME-CAMP-1000296

PATIENT
  Sex: Female
  Weight: 86.168 kg

DRUGS (14)
  1. CAMPATH [Suspect]
     Dosage: 12 MG, QDX3
     Route: 042
     Dates: start: 20090817, end: 20090819
  2. ADVIL LIQUI-GELS [Concomitant]
     Indication: PRODUCT USED FOR UNKNOWN INDICATION
     Dosage: 200 MG, PRN
     Route: 048
     Dates: start: 20090817
  3. VALTREX [Concomitant]
     Indication: PROPHYLAXIS
     Dosage: 1000 MG, BID
     Route: 048
     Dates: start: 20091108
  4. VALTREX [Concomitant]
     Indication: PRODUCT USED FOR UNKNOWN INDICATION
     Dosage: 1000 MG, QD
     Route: 048
     Dates: start: 20100510, end: 20100516
  5. CAMPATH [Suspect]
     Indication: MULTIPLE SCLEROSIS
     Dosage: 12 MG, QDX5
     Route: 042
     Dates: start: 20080512, end: 20080516
  6. ZOFRAN [Concomitant]
     Indication: PROPHYLAXIS
     Dosage: 8 MG, UNK
     Route: 048
     Dates: start: 20090812
  7. FLUCONAZOLE [Concomitant]
     Indication: PRODUCT USED FOR UNKNOWN INDICATION
     Dosage: 400 MG, QD
     Route: 042
     Dates: start: 20100508, end: 20100513
  8. METHYLPREDNISOLONE [Concomitant]
     Indication: BASEDOW'S DISEASE
     Dosage: 8 MG, TID
     Route: 048
     Dates: start: 20100405, end: 20100409
  9. METHYLPREDNISOLONE [Concomitant]
     Dosage: 1.0 G, QDX3
     Route: 042
     Dates: start: 20090817, end: 20090819
  10. METHYLPREDNISOLONE [Concomitant]
     Indication: MULTIPLE SCLEROSIS
     Dosage: 1.0 G, QDX3
     Route: 042
     Dates: start: 20080512, end: 20080514
  11. VANCOMYCIN [Concomitant]
     Indication: FEBRILE NEUTROPENIA
     Dosage: 1 G, Q12HR
     Route: 042
     Dates: start: 20100501, end: 20100516
  12. METHYLPREDNISOLONE [Concomitant]
     Dosage: 8 MG, BID
     Route: 048
     Dates: start: 20100410, end: 20100415
  13. CEFEPIME [Concomitant]
     Indication: FEBRILE NEUTROPENIA
     Dosage: 1 G, Q12HR
     Route: 042
     Dates: start: 20100501, end: 20100513
  14. NUVIGIL [Concomitant]
     Indication: PRODUCT USED FOR UNKNOWN INDICATION
     Dosage: 150 MG, QD
     Route: 048
     Dates: start: 20091116

REACTIONS (4)
  - AGRANULOCYTOSIS [None]
  - BASEDOW'S DISEASE [None]
  - AUTOIMMUNE THYROIDITIS [None]
  - THYROTOXIC CRISIS [None]
